FAERS Safety Report 9258654 (Version 1)
Quarter: 2013Q2

REPORT INFORMATION
  Report Type: Spontaneous
  Country: NZ (occurrence: NZ)
  Receive Date: 20130426
  Receipt Date: 20130426
  Transmission Date: 20140414
  Serious: Yes (Hospitalization, Other)
  Sender: FDA-Public Use
  Company Number: NZ-ABBOTT-13P-118-1080058-00

PATIENT
  Sex: Male

DRUGS (1)
  1. HUMIRA [Suspect]
     Indication: PSORIASIS

REACTIONS (3)
  - HIV test positive [Unknown]
  - Pneumonia [Unknown]
  - Alopecia [Unknown]
